FAERS Safety Report 6266924-8 (Version None)
Quarter: 2009Q3

REPORT INFORMATION
  Report Type: 
  Country: None (occurrence: None)
  Receive Date: 20090714
  Receipt Date: 20090703
  Transmission Date: 20100115
  Serious: Yes (Other)
  Sender: FDA-Public Use
  Company Number: PHHY2009GB27556

PATIENT
  Sex: Female

DRUGS (3)
  1. RASILEZ [Suspect]
     Indication: BLOOD PRESSURE
     Dosage: UNK
     Route: 048
     Dates: start: 20081001
  2. RASILEZ [Suspect]
     Indication: SYNCOPE
  3. ST. JOHN'S WORT [Concomitant]
     Indication: DEPRESSION
     Dosage: 450 MG, QD
     Route: 048
     Dates: start: 20080401

REACTIONS (5)
  - ACTIVITIES OF DAILY LIVING IMPAIRED [None]
  - ARTHRALGIA [None]
  - MYALGIA [None]
  - PAIN IN EXTREMITY [None]
  - WEIGHT INCREASED [None]
